FAERS Safety Report 11790006 (Version 3)
Quarter: 2015Q4

REPORT INFORMATION
  Report Type: Spontaneous
  Country: JP (occurrence: JP)
  Receive Date: 20151201
  Receipt Date: 20151217
  Transmission Date: 20160305
  Serious: Yes (Other)
  Sender: FDA-Public Use
  Company Number: JP-SA-2015SA193469

PATIENT
  Age: 45 Year
  Sex: Male

DRUGS (1)
  1. DELLEGRA [Suspect]
     Active Substance: FEXOFENADINE HYDROCHLORIDE\PSEUDOEPHEDRINE HYDROCHLORIDE
     Indication: NASAL CONGESTION
     Dosage: FREQUENCY: BEFORE BEDTIME WHEN HE WAS HAVING?INTENSIVE NASAL CONGESTION
     Route: 048

REACTIONS (2)
  - Palpitations [Unknown]
  - Angina pectoris [Recovered/Resolved]
